FAERS Safety Report 14145706 (Version 2)
Quarter: 2017Q4

REPORT INFORMATION
  Report Type: Spontaneous
  Country: JP (occurrence: JP)
  Receive Date: 20171031
  Receipt Date: 20171115
  Transmission Date: 20180321
  Serious: No
  Sender: FDA-Public Use
  Company Number: JP-JNJFOC-20171032081

PATIENT

DRUGS (3)
  1. DOXIL [Suspect]
     Active Substance: DOXORUBICIN HYDROCHLORIDE
     Indication: OVARIAN CANCER
     Route: 042
  2. DOXIL [Suspect]
     Active Substance: DOXORUBICIN HYDROCHLORIDE
     Indication: FALLOPIAN TUBE CANCER
     Route: 042
  3. DOXIL [Suspect]
     Active Substance: DOXORUBICIN HYDROCHLORIDE
     Indication: MALIGNANT PERITONEAL NEOPLASM
     Route: 042

REACTIONS (2)
  - Product use in unapproved indication [Unknown]
  - Off label use [Unknown]
